FAERS Safety Report 4652356-2 (Version None)
Quarter: 2005Q2

REPORT INFORMATION
  Report Type: 
  Country: None (occurrence: None)
  Receive Date: 20050504
  Receipt Date: 20050428
  Transmission Date: 20051028
  Serious: Yes (Hospitalization)
  Sender: FDA-Public Use
  Company Number: FR-GLAXOSMITHKLINE-B0379764A

PATIENT
  Age: 56 Year
  Sex: Female
  Weight: 107 kg

DRUGS (4)
  1. FORTUM [Suspect]
     Dosage: 3G PER DAY
     Route: 042
     Dates: start: 20030923, end: 20031003
  2. PREDNISONE [Concomitant]
     Route: 048
     Dates: start: 20030603
  3. PROGRAF [Concomitant]
     Route: 048
     Dates: start: 20030603
  4. CELLCEPT [Concomitant]
     Route: 048
     Dates: start: 20030603, end: 20031017

REACTIONS (4)
  - ELECTROCARDIOGRAM ABNORMAL [None]
  - GRAND MAL CONVULSION [None]
  - HYPONATRAEMIA [None]
  - SINUS BRADYCARDIA [None]
